FAERS Safety Report 22119118 (Version 2)
Quarter: 2023Q1

REPORT INFORMATION
  Report Type: Spontaneous
  Country: IT (occurrence: IT)
  Receive Date: 20230321
  Receipt Date: 20230329
  Transmission Date: 20230417
  Serious: Yes (Hospitalization, Other)
  Sender: FDA-Public Use
  Company Number: IT-MLMSERVICE-20230310-4160623-1

PATIENT
  Age: 59 Year
  Sex: Female
  Weight: 60 kg

DRUGS (18)
  1. OXALIPLATIN [Suspect]
     Active Substance: OXALIPLATIN
     Indication: Pancreatic carcinoma stage IV
     Dosage: 85 MG/M2, QCY
     Dates: start: 202102
  2. OXALIPLATIN [Suspect]
     Active Substance: OXALIPLATIN
     Indication: Pancreatic carcinoma
  3. OXALIPLATIN [Suspect]
     Active Substance: OXALIPLATIN
     Indication: Metastases to liver
  4. GEMCITABINE [Suspect]
     Active Substance: GEMCITABINE
     Indication: Pancreatic carcinoma
     Dosage: DAYS 1, 8 AND 15 OF A 28-D CYCLE 1000 MG/M2, QCY
     Dates: start: 2020
  5. GEMCITABINE [Suspect]
     Active Substance: GEMCITABINE
     Indication: Pancreatic carcinoma stage IV
  6. GEMCITABINE [Suspect]
     Active Substance: GEMCITABINE
     Indication: Metastases to liver
  7. FLUOROURACIL [Concomitant]
     Active Substance: FLUOROURACIL
     Indication: Pancreatic carcinoma
     Dosage: CONTINUOUS INFUSION FOR 44 H 2400 MG/M2, QCY
     Dates: start: 202102
  8. FLUOROURACIL [Concomitant]
     Active Substance: FLUOROURACIL
     Indication: Pancreatic carcinoma stage IV
  9. FLUOROURACIL [Concomitant]
     Active Substance: FLUOROURACIL
     Indication: Metastases to liver
  10. IRINOTECAN [Concomitant]
     Active Substance: IRINOTECAN
     Indication: Pancreatic carcinoma
     Dosage: 150 MG/M2, QCY
     Dates: start: 202102
  11. IRINOTECAN [Concomitant]
     Active Substance: IRINOTECAN
     Indication: Pancreatic carcinoma stage IV
  12. IRINOTECAN [Concomitant]
     Active Substance: IRINOTECAN
     Indication: Metastases to liver
  13. PACLITAXEL [Concomitant]
     Active Substance: PACLITAXEL
     Indication: Pancreatic carcinoma
     Dosage: DAYS 1, 8 AND 15 OF A 28-D CYCLE 125 MG/M2, QCY
     Dates: start: 2020
  14. PACLITAXEL [Concomitant]
     Active Substance: PACLITAXEL
     Indication: Pancreatic carcinoma stage IV
  15. PACLITAXEL [Concomitant]
     Active Substance: PACLITAXEL
     Indication: Metastases to liver
  16. FOLIC ACID [Concomitant]
     Active Substance: FOLIC ACID
     Indication: Pancreatic carcinoma
     Dosage: 200 MG/M2, QCY
     Dates: start: 202102
  17. FOLIC ACID [Concomitant]
     Active Substance: FOLIC ACID
     Indication: Pancreatic carcinoma stage IV
  18. FOLIC ACID [Concomitant]
     Active Substance: FOLIC ACID
     Indication: Metastases to liver

REACTIONS (20)
  - Tumour thrombosis [Unknown]
  - Deep vein thrombosis [Unknown]
  - Pelvic venous thrombosis [Unknown]
  - Sinus tachycardia [Unknown]
  - Aortic occlusion [Unknown]
  - Pulmonary infarction [Unknown]
  - Anaemia [Unknown]
  - Pleural effusion [Unknown]
  - Pulmonary embolism [Unknown]
  - Thrombocytopenia [Unknown]
  - Hypothermia [Unknown]
  - Diastolic dysfunction [Unknown]
  - Tricuspid valve incompetence [Unknown]
  - Mitral valve incompetence [Unknown]
  - Atrial thrombosis [Unknown]
  - Embolism venous [Unknown]
  - Chest pain [Unknown]
  - Cough [Unknown]
  - Dizziness [Unknown]
  - Dyspnoea [Unknown]

NARRATIVE: CASE EVENT DATE: 20210101
